FAERS Safety Report 8585631 (Version 2)
Quarter: 2014Q2

REPORT INFORMATION
  Report Type: Spontaneous
  Country: US (occurrence: US)
  Receive Date: 20120530
  Receipt Date: 20140530
  Transmission Date: 20141212
  Serious: No
  Sender: FDA-Public Use
  Company Number: US-GLAXOSMITHKLINE-A0943910A

PATIENT
  Age: 25 Year
  Sex: Female
  Weight: 64 kg

DRUGS (1)
  1. FLOLAN [Suspect]
     Indication: PULMONARY ARTERIAL HYPERTENSION
     Dosage: 43NGKM CONTINUOUS
     Route: 042
     Dates: start: 20080826

REACTIONS (6)
  - Dizziness [Unknown]
  - Palpitations [Unknown]
  - Device breakage [Unknown]
  - Device leakage [Unknown]
  - Pyrexia [Unknown]
  - Chills [Unknown]
